FAERS Safety Report 8605171-9 (Version None)
Quarter: 2012Q3

REPORT INFORMATION
  Report Type: 
  Country: None (occurrence: None)
  Receive Date: 20120820
  Receipt Date: 20120809
  Transmission Date: 20120928
  Serious: Yes (Other)
  Sender: FDA-Public Use
  Company Number: US-PFIZER INC-2012176173

PATIENT
  Age: 37 Year
  Sex: Female
  Weight: 54 kg

DRUGS (10)
  1. GABAPENTIN [Suspect]
     Indication: NERVE INJURY
     Dosage: UNK
     Route: 048
     Dates: start: 20061101, end: 20061101
  2. SOMA [Concomitant]
     Indication: ACCIDENT AT WORK
     Dosage: UNK
     Dates: start: 20050601
  3. LIPITOR [Concomitant]
     Indication: BLOOD CHOLESTEROL INCREASED
     Dosage: UNK
  4. PERCOCET [Concomitant]
     Indication: ACCIDENT AT WORK
     Dosage: UNK
     Dates: start: 20050601
  5. NORTRIPTYLINE [Suspect]
     Indication: NERVE INJURY
     Dosage: UNK
     Dates: start: 20050601, end: 20060101
  6. GABAPENTIN [Suspect]
     Indication: NEURALGIA
  7. GABAPENTIN [Suspect]
  8. FLEXERIL [Concomitant]
     Indication: ACCIDENT AT WORK
     Dosage: UNK
     Dates: start: 20050601
  9. GABAPENTIN [Suspect]
  10. NORTRIPTYLINE [Suspect]
     Indication: NEURALGIA

REACTIONS (44)
  - LUNG INFECTION [None]
  - HEADACHE [None]
  - VOMITING [None]
  - PROTEIN URINE [None]
  - SPINAL DISORDER [None]
  - GENERAL PHYSICAL HEALTH DETERIORATION [None]
  - DRUG INEFFECTIVE [None]
  - WEIGHT INCREASED [None]
  - ABDOMINAL MASS [None]
  - UPPER RESPIRATORY TRACT INFECTION [None]
  - ULCER [None]
  - SYNCOPE [None]
  - DYSPEPSIA [None]
  - ONYCHOCLASIS [None]
  - DYSPHAGIA [None]
  - INSOMNIA [None]
  - STEVENS-JOHNSON SYNDROME [None]
  - ASTHENIA [None]
  - NAUSEA [None]
  - TOOTH DISCOLOURATION [None]
  - DYSGEUSIA [None]
  - TOXICITY TO VARIOUS AGENTS [None]
  - DIZZINESS [None]
  - ALOPECIA [None]
  - EYE PAIN [None]
  - INFLUENZA [None]
  - BODY TEMPERATURE FLUCTUATION [None]
  - MUSCLE TWITCHING [None]
  - MALAISE [None]
  - PAIN [None]
  - SKIN EXFOLIATION [None]
  - THIRST [None]
  - VISION BLURRED [None]
  - CALCINOSIS [None]
  - KIDNEY INFECTION [None]
  - WEIGHT DECREASED [None]
  - BOWEL MOVEMENT IRREGULARITY [None]
  - ABDOMINAL PAIN [None]
  - OROPHARYNGEAL PAIN [None]
  - CHILLS [None]
  - HAEMATOCHEZIA [None]
  - LOSS OF CONSCIOUSNESS [None]
  - WOUND [None]
  - HERPES ZOSTER [None]
